FAERS Safety Report 18305519 (Version 1)
Quarter: 2020Q3

REPORT INFORMATION
  Report Type: Spontaneous
  Country: US (occurrence: US)
  Receive Date: 20200923
  Receipt Date: 20200923
  Transmission Date: 20201103
  Serious: Yes (Other)
  Sender: FDA-Public Use
  Company Number: None

PATIENT
  Age: 44 Year
  Sex: Female
  Weight: 84.15 kg

DRUGS (4)
  1. INSULIN PUMP [Concomitant]
     Active Substance: DEVICE\INSULIN NOS
  2. WP THYROID 65 MG [Suspect]
     Active Substance: THYROID, PORCINE
     Indication: THYROID CANCER
     Dosage: ?          QUANTITY:1 TABLET(S);?
     Route: 048
     Dates: start: 20200620, end: 20200923
  3. HUMALOG [Concomitant]
     Active Substance: INSULIN LISPRO
  4. CALCIUM [Concomitant]
     Active Substance: CALCIUM

REACTIONS (1)
  - Blood thyroid stimulating hormone increased [None]

NARRATIVE: CASE EVENT DATE: 20200921
